FAERS Safety Report 4562069-3 (Version None)
Quarter: 2005Q1

REPORT INFORMATION
  Report Type: 
  Country: None (occurrence: None)
  Receive Date: 20050127
  Receipt Date: 20050113
  Transmission Date: 20050727
  Serious: Yes (Hospitalization, Other)
  Sender: FDA-Public Use
  Company Number: GB-JNJFOC-20050104426

PATIENT
  Sex: Female
  Weight: 65 kg

DRUGS (3)
  1. INFLIXIMAB [Suspect]
     Dosage: 4 INFUSIONS
     Route: 042
  2. METHOTREXATE [Concomitant]
     Route: 049
  3. FOLIC ACID [Concomitant]
     Route: 049

REACTIONS (6)
  - ARTHRALGIA [None]
  - DEPRESSION [None]
  - FATIGUE [None]
  - LUPUS-LIKE SYNDROME [None]
  - NECK PAIN [None]
  - PAIN [None]
